FAERS Safety Report 16683305 (Version 1)
Quarter: 2019Q3

REPORT INFORMATION
  Report Type: Spontaneous
  Country: US (occurrence: US)
  Receive Date: 20190807
  Receipt Date: 20190807
  Transmission Date: 20191007
  Serious: No
  Sender: FDA-Public Use
  Company Number: None

PATIENT
  Age: 81 Year
  Sex: Male
  Weight: 80.55 kg

DRUGS (2)
  1. TERAZOSIN HCL 2MG [Suspect]
     Active Substance: TERAZOSIN HYDROCHLORIDE
     Indication: PROSTATOMEGALY
     Dosage: ?          QUANTITY:90 CAPSULE(S);?
     Route: 048
     Dates: start: 20190805, end: 20190807
  2. TERAZOSIN HCL 2MG [Suspect]
     Active Substance: TERAZOSIN HYDROCHLORIDE
     Indication: NEPHROLITHIASIS
     Dosage: ?          QUANTITY:90 CAPSULE(S);?
     Route: 048
     Dates: start: 20190805, end: 20190807

REACTIONS (2)
  - Constipation [None]
  - Faeces hard [None]

NARRATIVE: CASE EVENT DATE: 20190807
